FAERS Safety Report 9279103 (Version 1)
Quarter: 2013Q2

REPORT INFORMATION
  Report Type: Spontaneous
  Country: US (occurrence: US)
  Receive Date: 20130508
  Receipt Date: 20130508
  Transmission Date: 20140414
  Serious: Yes (Other)
  Sender: FDA-Public Use
  Company Number: US-JNJFOC-20130416095

PATIENT
  Age: 70 Year
  Sex: Female
  Weight: 59.88 kg

DRUGS (5)
  1. TYLENOL WARMING COUGH + SEVERE CONGESTION DAYTIME HONEY LEMON [Suspect]
     Indication: INFLUENZA
     Route: 048
     Dates: start: 20130302, end: 20130405
  2. TYLENOL WARMING COUGH + SEVERE CONGESTION DAYTIME HONEY LEMON [Suspect]
     Indication: NASOPHARYNGITIS
     Route: 048
     Dates: start: 20130302, end: 20130405
  3. TYLENOL WARMING COUGH + SEVERE CONGESTION DAYTIME HONEY LEMON [Suspect]
     Indication: SINUS CONGESTION
     Route: 048
     Dates: start: 20130302, end: 20130405
  4. LIPITOR [Concomitant]
     Indication: HYPERTENSION
     Route: 065
     Dates: start: 2005
  5. NITROGLYCERIN PATCHES [Concomitant]
     Route: 065
     Dates: start: 2008

REACTIONS (5)
  - Blindness [Recovered/Resolved]
  - Loss of consciousness [Recovered/Resolved]
  - Dizziness [Recovered/Resolved]
  - Asthenia [Recovered/Resolved]
  - Head injury [Unknown]
